FAERS Safety Report 13410305 (Version 2)
Quarter: 2017Q2

REPORT INFORMATION
  Report Type: Spontaneous
  Country: US (occurrence: US)
  Receive Date: 20170406
  Receipt Date: 20170607
  Transmission Date: 20170830
  Serious: No
  Sender: FDA-Public Use
  Company Number: US-JNJFOC-20170304992

PATIENT
  Sex: Male

DRUGS (4)
  1. RISPERDAL [Suspect]
     Active Substance: RISPERIDONE
     Indication: ANXIETY
     Dosage: 1-4 MG
     Route: 048
     Dates: start: 201208, end: 201309
  2. INVEGA [Suspect]
     Active Substance: PALIPERIDONE
     Indication: DEPRESSION
     Dosage: 3-9 MG
     Route: 048
     Dates: start: 201210, end: 201211
  3. INVEGA [Suspect]
     Active Substance: PALIPERIDONE
     Indication: ANXIETY
     Dosage: 3-9 MG
     Route: 048
     Dates: start: 201210, end: 201211
  4. RISPERDAL [Suspect]
     Active Substance: RISPERIDONE
     Indication: DEPRESSION
     Dosage: 1-4 MG
     Route: 048
     Dates: start: 201208, end: 201309

REACTIONS (4)
  - Off label use [Unknown]
  - Abnormal weight gain [Unknown]
  - Gynaecomastia [Not Recovered/Not Resolved]
  - Product use in unapproved indication [Unknown]

NARRATIVE: CASE EVENT DATE: 2012
